FAERS Safety Report 6653499-4 (Version None)
Quarter: 2010Q1

REPORT INFORMATION
  Report Type: 
  Country: None (occurrence: None)
  Receive Date: 20100326
  Receipt Date: 20100316
  Transmission Date: 20100710
  Serious: Yes (Life-Threatening, Other)
  Sender: FDA-Public Use
  Company Number: BR-GENENTECH-241521

PATIENT
  Sex: Female
  Weight: 73.469 kg

DRUGS (16)
  1. XOLAIR [Suspect]
     Indication: CHRONIC OBSTRUCTIVE PULMONARY DISEASE
     Dosage: 375 MG, Q2W
     Route: 058
     Dates: start: 20090317, end: 20100121
  2. XOLAIR [Suspect]
     Indication: ASTHMA
  3. SPIRIVA [Concomitant]
     Indication: DRUG USE FOR UNKNOWN INDICATION
  4. SINGULAIR [Concomitant]
     Indication: DRUG USE FOR UNKNOWN INDICATION
  5. SERETIDE [Concomitant]
     Indication: DRUG USE FOR UNKNOWN INDICATION
  6. SYMBICORT [Concomitant]
     Indication: DRUG USE FOR UNKNOWN INDICATION
  7. XOPENEX [Concomitant]
     Indication: DRUG USE FOR UNKNOWN INDICATION
  8. PULMICORT [Concomitant]
     Indication: DRUG USE FOR UNKNOWN INDICATION
  9. ALLEGRA [Concomitant]
     Indication: DRUG USE FOR UNKNOWN INDICATION
  10. CRESTOR [Concomitant]
     Indication: DRUG USE FOR UNKNOWN INDICATION
  11. DIOVAN [Concomitant]
     Indication: DRUG USE FOR UNKNOWN INDICATION
  12. PRILOSEC [Concomitant]
     Indication: DRUG USE FOR UNKNOWN INDICATION
  13. ASPIRIN [Concomitant]
     Indication: DRUG USE FOR UNKNOWN INDICATION
  14. FLONASE [Concomitant]
     Indication: DRUG USE FOR UNKNOWN INDICATION
  15. ASTEPRO [Concomitant]
     Indication: DRUG USE FOR UNKNOWN INDICATION
  16. PRISTIQ [Concomitant]
     Indication: DRUG USE FOR UNKNOWN INDICATION

REACTIONS (4)
  - CARDIAC DISORDER [None]
  - CHRONIC OBSTRUCTIVE PULMONARY DISEASE [None]
  - CONTUSION [None]
  - HYPERTENSION [None]
